FAERS Safety Report 8274982-4 (Version None)
Quarter: 2012Q2

REPORT INFORMATION
  Report Type: 
  Country: None (occurrence: None)
  Receive Date: 20120411
  Receipt Date: 20120327
  Transmission Date: 20120825
  Serious: No
  Sender: FDA-Public Use
  Company Number: US-ENDO PHARMACEUTICALS INC.-OPER20120457

PATIENT
  Sex: Male

DRUGS (5)
  1. OPANA ER [Suspect]
     Indication: PAIN
     Route: 048
     Dates: start: 20111001, end: 20111117
  2. OPANA ER [Suspect]
     Route: 048
     Dates: start: 20111117, end: 20111201
  3. OPANA ER [Suspect]
     Route: 048
     Dates: start: 20111201, end: 20111222
  4. OPANA ER [Suspect]
     Route: 048
     Dates: start: 20120130
  5. OPANA ER [Suspect]
     Route: 048
     Dates: start: 20111222

REACTIONS (1)
  - DRUG INEFFECTIVE [None]
